FAERS Safety Report 8250434-2 (Version None)
Quarter: 2012Q2

REPORT INFORMATION
  Report Type: 
  Country: None (occurrence: None)
  Receive Date: 20120402
  Receipt Date: 20120323
  Transmission Date: 20120825
  Serious: Yes (Other)
  Sender: FDA-Public Use
  Company Number: CH-JNJFOC-20120311842

PATIENT
  Age: 19 Year
  Sex: Female

DRUGS (6)
  1. RISPERDAL [Suspect]
     Indication: SCHIZOPHRENIA, PARANOID TYPE
     Route: 048
     Dates: start: 20110101
  2. RISPERDAL [Suspect]
     Route: 048
     Dates: end: 20120101
  3. SEROQUEL [Suspect]
     Route: 048
     Dates: start: 20111108
  4. SEROQUEL [Suspect]
     Indication: SCHIZOPHRENIA, PARANOID TYPE
     Route: 048
     Dates: start: 20111115, end: 20111116
  5. SEROQUEL XR [Suspect]
     Indication: SCHIZOPHRENIA, PARANOID TYPE
     Route: 048
     Dates: start: 20111116, end: 20111116
  6. SEROQUEL XR [Suspect]
     Route: 048

REACTIONS (3)
  - PARKINSONISM [None]
  - PARAESTHESIA [None]
  - ABDOMINAL PAIN [None]
